FAERS Safety Report 7338570-6 (Version None)
Quarter: 2011Q1

REPORT INFORMATION
  Report Type: 
  Country: None (occurrence: None)
  Receive Date: 20110308
  Receipt Date: 20110223
  Transmission Date: 20110831
  Serious: Yes (Other)
  Sender: FDA-Public Use
  Company Number: US-ELI_LILLY_AND_COMPANY-US201102007086

PATIENT
  Age: 10 Month
  Sex: Female
  Weight: 9.07 kg

DRUGS (1)
  1. CYMBALTA [Suspect]
     Dosage: UNK, UNK

REACTIONS (5)
  - ACCIDENTAL EXPOSURE [None]
  - DECREASED APPETITE [None]
  - INSOMNIA [None]
  - ABNORMAL BEHAVIOUR [None]
  - APATHY [None]
